FAERS Safety Report 4389559-0 (Version None)
Quarter: 2004Q2

REPORT INFORMATION
  Report Type: 
  Country: None (occurrence: None)
  Receive Date: 20040629
  Receipt Date: 20040429
  Transmission Date: 20050107
  Serious: Yes (Hospitalization)
  Sender: FDA-Public Use
  Company Number: US-JNJFOC-20040401410

PATIENT
  Age: 41 Year
  Sex: Male

DRUGS (3)
  1. DURAGESIC [Suspect]
     Indication: PAIN
     Dosage: SEE IMAGE
     Route: 062
     Dates: start: 20031201, end: 20040318
  2. DURAGESIC [Suspect]
     Indication: PAIN
     Dosage: SEE IMAGE
     Route: 062
     Dates: start: 20040319
  3. NEURONTIN [Concomitant]

REACTIONS (10)
  - APPLICATION SITE ERYTHEMA [None]
  - CHILLS [None]
  - DRUG TOXICITY [None]
  - DRUG WITHDRAWAL SYNDROME [None]
  - DYSPNOEA [None]
  - LETHARGY [None]
  - MUSCLE CRAMP [None]
  - NAUSEA [None]
  - RASH [None]
  - SOMNOLENCE [None]
